FAERS Safety Report 11037548 (Version 1)
Quarter: 2015Q2

REPORT INFORMATION
  Report Type: Spontaneous
  Country: US (occurrence: None)
  Receive Date: 20150415
  Receipt Date: 20150415
  Transmission Date: 20150821
  Serious: No
  Sender: FDA-Public Use
  Company Number: None

PATIENT
  Age: 59 Year
  Sex: Female
  Weight: 72.58 kg

DRUGS (14)
  1. ABILIFY [Concomitant]
     Active Substance: ARIPIPRAZOLE
  2. TRAZODONE [Concomitant]
     Active Substance: TRAZODONE HYDROCHLORIDE
  3. MARIJUANA [Concomitant]
     Active Substance: CANNABIS SATIVA SUBSP. INDICA TOP
  4. PROLIA [Suspect]
     Active Substance: DENOSUMAB
     Indication: OSTEOPOROSIS POSTMENOPAUSAL
     Dosage: GIVEN INTO/UNDER THE SKIN EVERYT 6 MONTHS
     Dates: start: 20130919, end: 20150320
  5. MULTIVITAMIN [Concomitant]
     Active Substance: VITAMINS
  6. ATORVASTATIN [Concomitant]
     Active Substance: ATORVASTATIN
  7. FLUOXETINE [Concomitant]
     Active Substance: FLUOXETINE\FLUOXETINE HYDROCHLORIDE
  8. GABAPENTIN. [Concomitant]
     Active Substance: GABAPENTIN
  9. OXYCODONE [Concomitant]
     Active Substance: OXYCODONE
  10. VITAMIN D + CALCIUM [Concomitant]
     Active Substance: CALCIUM\VITAMIN D
  11. VITAMIN B COMPLEX [Concomitant]
     Active Substance: CYANOCOBALAMIN\DEXPANTHENOL\NIACINAMIDE\PYRIDOXINE HYDROCHLORIDE\RIBOFLAVIN 5^-PHOSPHATE SODIUM\THIAMINE HYDROCHLORIDE\VITAMIN B COMPLEX
  12. BUPROPION [Concomitant]
     Active Substance: BUPROPION
  13. FENTANYL. [Concomitant]
     Active Substance: FENTANYL
  14. PROLIA [Concomitant]
     Active Substance: DENOSUMAB

REACTIONS (3)
  - Arthralgia [None]
  - Bone pain [None]
  - Myalgia [None]

NARRATIVE: CASE EVENT DATE: 20150409
